FAERS Safety Report 8511481-6 (Version None)
Quarter: 2012Q3

REPORT INFORMATION
  Report Type: 
  Country: None (occurrence: None)
  Receive Date: 20120716
  Receipt Date: 20120705
  Transmission Date: 20120928
  Serious: Yes (Hospitalization)
  Sender: FDA-Public Use
  Company Number: CH-ASTRAZENECA-2012SE45762

PATIENT
  Age: 81 Year
  Sex: Male

DRUGS (8)
  1. METHOTREXATE SODIUM [Suspect]
     Route: 058
     Dates: start: 20120508, end: 20120508
  2. ENBREL [Concomitant]
     Route: 058
  3. PASPERTIN [Concomitant]
     Route: 048
     Dates: start: 20120509, end: 20120510
  4. NEXIUM [Suspect]
     Route: 048
     Dates: end: 20120429
  5. SINTROM [Suspect]
     Route: 048
  6. MOTILIUM [Concomitant]
     Route: 048
     Dates: start: 20120510
  7. SINTROM [Suspect]
     Route: 048
     Dates: end: 20120509
  8. BUPRENORPHINE HCL [Concomitant]
     Dates: start: 20120509, end: 20120510

REACTIONS (1)
  - CARDIAC TAMPONADE [None]
